FAERS Safety Report 17394195 (Version 1)
Quarter: 2020Q1

REPORT INFORMATION
  Report Type: Spontaneous
  Country: DE (occurrence: DE)
  Receive Date: 20200210
  Receipt Date: 20200210
  Transmission Date: 20200409
  Serious: Yes (Life-Threatening, Other)
  Sender: FDA-Public Use
  Company Number: DE-JNJFOC-20200149031

PATIENT

DRUGS (4)
  1. CANAKINUMAB. [Suspect]
     Active Substance: CANAKINUMAB
     Indication: STILL^S DISEASE
     Dosage: 248 MG, QMO (EVERY 4 WEEKS)
     Route: 065
     Dates: start: 20110316
  2. PREDNISOLONE. [Concomitant]
     Active Substance: PREDNISOLONE
     Indication: PRODUCT USED FOR UNKNOWN INDICATION
     Dosage: 10 MG, QD
     Route: 065
     Dates: start: 20050101
  3. METHOTREXATE (METHOTREXATE SODIUM) [Concomitant]
     Active Substance: METHOTREXATE SODIUM
     Indication: PRODUCT USED FOR UNKNOWN INDICATION
     Dosage: 15 MG, QW?METHOTREXATE: 15MG;
     Route: 065
     Dates: start: 20050101
  4. IBUPROFEN. [Suspect]
     Active Substance: IBUPROFEN
     Indication: PRODUCT USED FOR UNKNOWN INDICATION
     Dosage: 600 MG, QD OVERDOSE,IBUPROFEN: 600 MG
     Route: 065
     Dates: start: 20111201

REACTIONS (2)
  - Suicide attempt [Recovered/Resolved]
  - Depression suicidal [Unknown]

NARRATIVE: CASE EVENT DATE: 20120130
